FAERS Safety Report 18640323 (Version 1)
Quarter: 2020Q4

REPORT INFORMATION
  Report Type: Spontaneous
  Country: US (occurrence: US)
  Receive Date: 20201220
  Receipt Date: 20201220
  Transmission Date: 20210114
  Serious: Yes (Other)
  Sender: FDA-Public Use
  Company Number: US-SUN PHARMACEUTICAL INDUSTRIES LTD-2020R1-271844

PATIENT
  Age: 77 Year
  Sex: Male

DRUGS (6)
  1. CEFAZOLIN [Suspect]
     Active Substance: CEFAZOLIN
     Indication: HEPATOCELLULAR CARCINOMA
     Dosage: 2 GRAM,UNK
     Route: 042
  2. MITOMYCIN C [Suspect]
     Active Substance: MITOMYCIN
     Indication: HEPATOCELLULAR CARCINOMA
     Dosage: 10 MILLIGRAM,UNK
     Route: 065
  3. METRONIDAZOLE. [Suspect]
     Active Substance: METRONIDAZOLE
     Indication: HEPATOCELLULAR CARCINOMA
     Dosage: 500 MILLIGRAM,UNK
     Route: 042
  4. DEXAMETHASONE. [Suspect]
     Active Substance: DEXAMETHASONE
     Indication: HEPATOCELLULAR CARCINOMA
     Dosage: 10 MILLIGRAM,UNK
     Route: 042
  5. DOXORUBICIN [Suspect]
     Active Substance: DOXORUBICIN
     Indication: HEPATOCELLULAR CARCINOMA
     Dosage: 50 MILLIGRAM,UNK
     Route: 065
  6. ONDANSETRON [Suspect]
     Active Substance: ONDANSETRON
     Indication: HEPATOCELLULAR CARCINOMA
     Dosage: 16 MILLIGRAM,UNK
     Route: 042

REACTIONS (2)
  - Drug ineffective [Unknown]
  - Hypersensitivity [Recovered/Resolved]
